FAERS Safety Report 6739155-2 (Version None)
Quarter: 2010Q2

REPORT INFORMATION
  Report Type: 
  Country: None (occurrence: None)
  Receive Date: 20100525
  Receipt Date: 20100519
  Transmission Date: 20101027
  Serious: Yes (Death)
  Sender: FDA-Public Use
  Company Number: ES-CELGENEUS-144-50794-10051670

PATIENT
  Age: 75 Year
  Sex: Female
  Weight: 84 kg

DRUGS (1)
  1. VIDAZA [Suspect]
     Route: 058
     Dates: end: 20100201

REACTIONS (2)
  - DEATH [None]
  - DISEASE PROGRESSION [None]
